FAERS Safety Report 24586669 (Version 2)
Quarter: 2025Q1

REPORT INFORMATION
  Report Type: Report from Study
  Country: US (occurrence: US)
  Receive Date: 20241107
  Receipt Date: 20250106
  Transmission Date: 20250408
  Serious: Yes (Other)
  Sender: ABBVIE
  Company Number: US-ABBVIE-5955957

PATIENT
  Age: 74 Year
  Sex: Male
  Weight: 91.625 kg

DRUGS (1)
  1. HUMIRA [Suspect]
     Active Substance: ADALIMUMAB
     Indication: Psoriasis
     Dosage: CITRATE FREE
     Route: 058
     Dates: start: 20160108

REACTIONS (3)
  - Cancer cells present [Not Recovered/Not Resolved]
  - Psoriasis [Recovering/Resolving]
  - Scab [Recovered/Resolved]

NARRATIVE: CASE EVENT DATE: 20240101
